FAERS Safety Report 9248853 (Version 2)
Quarter: 2014Q1

REPORT INFORMATION
  Report Type: Spontaneous
  Country: US (occurrence: None)
  Receive Date: 20130305
  Receipt Date: 20140306
  Transmission Date: 20141002
  Serious: Yes (Hospitalization, Disabling, Other)
  Sender: FDA-Public Use
  Company Number: 163-21880-12101214

PATIENT
  Age: 69 Year
  Sex: Male

DRUGS (3)
  1. REVLIMID [Suspect]
     Indication: RENAL CANCER
     Dosage: 21 IN 21 D
     Route: 048
     Dates: start: 201208
  2. REVLIMID [Suspect]
     Indication: RENAL CANCER
     Dosage: 21 IN 21 D
     Route: 048
     Dates: start: 201208
  3. REVLIMID [Suspect]
     Indication: RENAL CANCER METASTATIC
     Dosage: 21 IN 21 D
     Route: 048
     Dates: start: 201208

REACTIONS (2)
  - Gastrointestinal haemorrhage [None]
  - Renal cancer metastatic [None]
